FAERS Safety Report 7236547-2 (Version None)
Quarter: 2011Q1

REPORT INFORMATION
  Report Type: 
  Country: None (occurrence: None)
  Receive Date: 20110120
  Receipt Date: 20110114
  Transmission Date: 20110831
  Serious: Yes (Other)
  Sender: FDA-Public Use
  Company Number: US-EISAI INC-E2020-08385-SPO-US

PATIENT
  Sex: Male

DRUGS (8)
  1. MECLIZINE HCL [Interacting]
     Indication: DIZZINESS
     Route: 048
     Dates: start: 20080101
  2. DETROL LA [Interacting]
     Indication: PAIN
     Route: 048
     Dates: start: 20110111
  3. LIPITOR [Interacting]
     Route: 048
  4. ARICEPT [Suspect]
     Indication: DEMENTIA
     Route: 048
     Dates: start: 20080101
  5. LISINOPRIL [Interacting]
     Route: 048
     Dates: start: 20080101
  6. ASPIRIN [Concomitant]
     Indication: ANTICOAGULANT THERAPY
     Route: 048
  7. ARICEPT [Interacting]
     Route: 048
  8. LIPITOR [Interacting]
     Dosage: UNKNOWN
     Route: 048
     Dates: start: 20080101

REACTIONS (3)
  - DRUG INTERACTION [None]
  - ABNORMAL BEHAVIOUR [None]
  - HALLUCINATION [None]
